FAERS Safety Report 9250758 (Version 1)
Quarter: 2013Q1

REPORT INFORMATION
  Report Type: Spontaneous
  Country: US (occurrence: None)
  Receive Date: 20130305
  Receipt Date: 20130305
  Transmission Date: 20140127
  Serious: Yes (Other)
  Sender: FDA-Public Use
  Company Number: 163-21880-12062007 (0)

PATIENT
  Age: 60 Year
  Sex: Female

DRUGS (11)
  1. REVLIMID(LENALIDOMIDE) (5 MILLIGRAM, CAPSULES) [Suspect]
     Indication: PLASMA CELL MYELOMA
     Dosage: 3.3333 MG, 14 IN 21 D, PO
     Route: 048
     Dates: start: 20120425
  2. ASPIRIN(ACETYLSALICYLIC ACID) (UNKNOWN) [Concomitant]
  3. DEXAMETHASONE(DEXAMETHASONE) (UNKNOWN) [Concomitant]
  4. LOVASTATIN(LOVASTATIN) (UNKNOWN) [Concomitant]
  5. ACYCLOVIR(ACICLOVIR) (UNKNOWN) [Concomitant]
  6. CYCLOBENZAPRINE(CYCLOBENZAPRINE) (UNKNOWN) [Concomitant]
  7. BUPROPION XL(BUPROPION) (UNKNOWN) [Concomitant]
  8. LORCET(VICODIN) (UNKNOWN) [Concomitant]
  9. MULTIVITAMINS(MULTIVITAMINS) (UNKNOWN) [Concomitant]
  10. VELCADE(BORTEZOMIB) (UNKNOWN) [Concomitant]
  11. AREDIA(PAMIDRONATE DISODIUM) (UNKNOWN) [Concomitant]

REACTIONS (2)
  - Upper respiratory tract infection [None]
  - Fatigue [None]
